FAERS Safety Report 24739335 (Version 1)
Quarter: 2024Q4

REPORT INFORMATION
  Report Type: Spontaneous
  Country: US (occurrence: US)
  Receive Date: 20241216
  Receipt Date: 20241216
  Transmission Date: 20250114
  Serious: Yes (Other)
  Sender: BEXIMCO PHARMACEUTICALS
  Company Number: US-BEXIMCO-2024BEX00052

PATIENT
  Sex: Female

DRUGS (1)
  1. BACLOFEN [Suspect]
     Active Substance: BACLOFEN

REACTIONS (1)
  - Drug-induced liver injury [Recovered/Resolved]
